FAERS Safety Report 8060398-2 (Version None)
Quarter: 2012Q1

REPORT INFORMATION
  Report Type: 
  Country: None (occurrence: None)
  Receive Date: 20120120
  Receipt Date: 20120117
  Transmission Date: 20120608
  Serious: Yes (Hospitalization)
  Sender: FDA-Public Use
  Company Number: US-GLAXOSMITHKLINE-A0905644A

PATIENT
  Age: 69 Year
  Sex: Female
  Weight: 95.5 kg

DRUGS (4)
  1. MAXZIDE [Concomitant]
  2. TOPROL-XL [Concomitant]
  3. AVANDIA [Suspect]
     Indication: DIABETES MELLITUS
     Dosage: 4MG PER DAY
     Route: 048
     Dates: start: 20011112, end: 20070101
  4. LIPITOR [Concomitant]

REACTIONS (4)
  - MYOCARDIAL INFARCTION [None]
  - CHEST PAIN [None]
  - ACUTE CORONARY SYNDROME [None]
  - FATIGUE [None]
